FAERS Safety Report 20478875 (Version 3)
Quarter: 2022Q2

REPORT INFORMATION
  Report Type: Report from Study
  Country: GB (occurrence: GB)
  Receive Date: 20220216
  Receipt Date: 20220613
  Transmission Date: 20220720
  Serious: Yes (Other)
  Sender: FDA-Public Use
  Company Number: GB-NOVARTISPH-NVSC2021GB148207

PATIENT
  Age: 40 Year
  Sex: Female

DRUGS (4)
  1. KISQALI [Suspect]
     Active Substance: RIBOCICLIB
     Indication: Breast cancer
     Dosage: 400 MG, OTHER (ONE TABLET DAILY FOR 3 WEEKS, ONE WEEK OFF AND THEN REPEAT CYCLE)
     Route: 048
     Dates: start: 20210529
  2. KISQALI [Suspect]
     Active Substance: RIBOCICLIB
     Dosage: 100 MG, (ONCE A DAY FOR 3 WEEKS, ONE WEEK OFF, REPEAT CYCLE)
     Route: 065
     Dates: start: 20210529
  3. KISQALI [Suspect]
     Active Substance: RIBOCICLIB
     Dosage: UNK UNK, QD
     Route: 048
     Dates: start: 20210529
  4. KISQALI [Suspect]
     Active Substance: RIBOCICLIB
     Dosage: 200 MG, TID
     Route: 048
     Dates: start: 20210529

REACTIONS (12)
  - Pain [Unknown]
  - Breast pain [Unknown]
  - Arthralgia [Not Recovered/Not Resolved]
  - Underdose [Unknown]
  - Anaemia [Unknown]
  - Neutrophil count decreased [Unknown]
  - Illness [Unknown]
  - Anxiety [Unknown]
  - Sleep disorder [Unknown]
  - Pain in extremity [Unknown]
  - Back pain [Unknown]
  - Decreased appetite [Unknown]

NARRATIVE: CASE EVENT DATE: 20210529
